FAERS Safety Report 9013240 (Version 1)
Quarter: 2013Q1

REPORT INFORMATION
  Report Type: Spontaneous
  Country: TR (occurrence: TR)
  Receive Date: 20130115
  Receipt Date: 20130115
  Transmission Date: 20140127
  Serious: Yes (Hospitalization)
  Sender: FDA-Public Use
  Company Number: TR-RANBAXY-2005US-00556

PATIENT
  Age: 34 Year
  Sex: Female

DRUGS (2)
  1. FLUOXETINE [Suspect]
     Indication: DEPRESSION
     Dosage: 20 MG, QD
     Route: 065
  2. TEGASEROD [Interacting]
     Indication: IRRITABLE BOWEL SYNDROME
     Dosage: UNK
     Route: 065

REACTIONS (2)
  - Panic attack [Recovered/Resolved]
  - Drug interaction [Recovered/Resolved]
